FAERS Safety Report 15113225 (Version 2)
Quarter: 2018Q3

REPORT INFORMATION
  Report Type: Report from Study
  Country: IT (occurrence: IT)
  Receive Date: 20180706
  Receipt Date: 20180817
  Transmission Date: 20181010
  Serious: Yes (Hospitalization)
  Sender: FDA-Public Use
  Company Number: IT-TEVA-2018-IT-921188

PATIENT
  Age: 52 Year
  Sex: Female

DRUGS (4)
  1. VALDORM 30 MG CAPSULE [Suspect]
     Active Substance: FLURAZEPAM HYDROCHLORIDE
     Indication: DRUG ABUSE
     Route: 048
     Dates: start: 20180422, end: 20180422
  2. LARGACTIL? 100 MG COMPRESSE RIVESTITE CON FILM [Suspect]
     Active Substance: CHLORPROMAZINE HYDROCHLORIDE
     Indication: DRUG ABUSE
     Route: 048
     Dates: start: 20180422, end: 20180422
  3. DEPAKIN [Suspect]
     Active Substance: VALPROATE SODIUM
     Indication: DRUG ABUSE
     Route: 048
     Dates: start: 20180422, end: 20180422
  4. QUETIAPINE. [Suspect]
     Active Substance: QUETIAPINE
     Indication: DRUG ABUSE
     Route: 048
     Dates: start: 20180422, end: 20180422

REACTIONS (4)
  - Dysarthria [Recovered/Resolved]
  - Confusional state [Recovered/Resolved]
  - Drug abuse [Recovered/Resolved]
  - Pyrexia [Recovered/Resolved]

NARRATIVE: CASE EVENT DATE: 20180422
